FAERS Safety Report 19201993 (Version 1)
Quarter: 2021Q2

REPORT INFORMATION
  Report Type: Other
  Country: GB (occurrence: GB)
  Receive Date: 20210430
  Receipt Date: 20210430
  Transmission Date: 20210717
  Serious: Yes (Disabling, Other)
  Sender: FDA-Public Use
  Company Number: GB-GLENMARK PHARMACEUTICALS-2021GMK053726

PATIENT

DRUGS (4)
  1. MONTELUKAST SODIUM. [Suspect]
     Active Substance: MONTELUKAST SODIUM
     Indication: ILL-DEFINED DISORDER
     Dosage: 15 MILLIGRAM, QD
     Route: 048
     Dates: start: 20200801, end: 20210420
  2. SERETIDE [Concomitant]
     Active Substance: FLUTICASONE PROPIONATE\SALMETEROL XINAFOATE
     Indication: ASTHMA
  3. SERETIDE [Concomitant]
     Active Substance: FLUTICASONE PROPIONATE\SALMETEROL XINAFOATE
     Indication: COUGH
  4. SERETIDE [Concomitant]
     Active Substance: FLUTICASONE PROPIONATE\SALMETEROL XINAFOATE
     Indication: ILL-DEFINED DISORDER
     Dosage: UNK
     Route: 065

REACTIONS (8)
  - Obsessive-compulsive disorder [Unknown]
  - Depression [Unknown]
  - Panic attack [Unknown]
  - Nightmare [Unknown]
  - Hyperventilation [Unknown]
  - Suicidal ideation [Unknown]
  - Adverse drug reaction [Unknown]
  - Anxiety [Unknown]

NARRATIVE: CASE EVENT DATE: 20201101
